FAERS Safety Report 8367901-3 (Version None)
Quarter: 2012Q2

REPORT INFORMATION
  Report Type: 
  Country: None (occurrence: None)
  Receive Date: 20120516
  Receipt Date: 20120507
  Transmission Date: 20120825
  Serious: Yes (Hospitalization)
  Sender: FDA-Public Use
  Company Number: 1281094

PATIENT
  Age: 41 Year
  Sex: Female

DRUGS (5)
  1. METHOTREXATE [Suspect]
     Indication: RHEUMATOID ARTHRITIS
     Dosage: 20 MILLIGRAM, 1 WEEK
     Dates: start: 20100720
  2. FOLIC ACID [Concomitant]
  3. (ABATACEPT) [Suspect]
     Indication: RHEUMATOID ARTHRITIS
     Dosage: 125 MILLIGRAM, NOT REPORTED
     Dates: start: 20100907
  4. CEPHALEXIN [Concomitant]
  5. (ADALIMUMAB) [Suspect]
     Indication: RHEUMATOID ARTHRITIS
     Dosage: 40 MILLIGRAM, NOT REPORTED
     Dates: start: 20100907

REACTIONS (3)
  - PYREXIA [None]
  - ABSCESS [None]
  - NO THERAPEUTIC RESPONSE [None]
